FAERS Safety Report 22078305 (Version 1)
Quarter: 2023Q1

REPORT INFORMATION
  Report Type: Spontaneous
  Country: US (occurrence: None)
  Receive Date: 20230308
  Receipt Date: 20230308
  Transmission Date: 20230418
  Serious: Yes (Other)
  Sender: FDA-Public Use
  Company Number: None

PATIENT
  Age: 63 Year
  Sex: Female
  Weight: 60.3 kg

DRUGS (7)
  1. OXYCODONE [Suspect]
     Active Substance: OXYCODONE
     Indication: Pain
     Dosage: 1 TABLET EVERY 8 HOURS ORAL
     Route: 048
  2. Methadone protonix [Concomitant]
  3. LIDODERM [Concomitant]
     Active Substance: LIDOCAINE
  4. volteran cream [Concomitant]
  5. amtriptyline [Concomitant]
  6. CYMBALTA [Concomitant]
     Active Substance: DULOXETINE HYDROCHLORIDE
  7. Multivitamin B complex [Concomitant]

REACTIONS (5)
  - Inadequate analgesia [None]
  - Oedema peripheral [None]
  - Heart rate increased [None]
  - Blood pressure increased [None]
  - Product substitution issue [None]

NARRATIVE: CASE EVENT DATE: 20230218
